FAERS Safety Report 17581423 (Version 1)
Quarter: 2020Q1

REPORT INFORMATION
  Report Type: Spontaneous
  Country: US (occurrence: US)
  Receive Date: 20200323
  Receipt Date: 20200323
  Transmission Date: 20200409
  Serious: No
  Sender: FDA-Public Use
  Company Number: None

PATIENT
  Age: 58 Year
  Sex: Female

DRUGS (2)
  1. BOSENTAN 125MG ROXANE [Concomitant]
     Active Substance: BOSENTAN
     Indication: PULMONARY ARTERIAL HYPERTENSION
     Route: 048
     Dates: start: 20190228
  2. VELETRI [Suspect]
     Active Substance: EPOPROSTENOL

REACTIONS (3)
  - Extra dose administered [None]
  - Wrong technique in device usage process [None]
  - Flushing [None]

NARRATIVE: CASE EVENT DATE: 20200320
